FAERS Safety Report 4776270-7 (Version None)
Quarter: 2005Q3

REPORT INFORMATION
  Report Type: 
  Country: None (occurrence: None)
  Receive Date: 20050922
  Receipt Date: 20050912
  Transmission Date: 20060218
  Serious: Yes (Hospitalization)
  Sender: FDA-Public Use
  Company Number: US-JNJFOC-20050903640

PATIENT
  Sex: Male
  Weight: 90.72 kg

DRUGS (4)
  1. FENTANYL [Suspect]
     Route: 062
  2. FENTANYL [Suspect]
     Route: 062
  3. FENTANYL [Suspect]
     Route: 062
  4. FENTANYL [Suspect]
     Route: 062

REACTIONS (4)
  - DECREASED APPETITE [None]
  - INAPPROPRIATE SCHEDULE OF DRUG ADMINISTRATION [None]
  - SOMNOLENCE [None]
  - SWELLING [None]
